FAERS Safety Report 4361261-0 (Version None)
Quarter: 2004Q2

REPORT INFORMATION
  Report Type: 
  Country: None (occurrence: None)
  Receive Date: 20040520
  Receipt Date: 20040430
  Transmission Date: 20050107
  Serious: Yes (Other)
  Sender: FDA-Public Use
  Company Number: US-GLAXOSMITHKLINE-A0509115A

PATIENT
  Age: 25 Year
  Sex: Female
  Weight: 40.5 kg

DRUGS (2)
  1. ZYBAN [Suspect]
     Dosage: 150MG SEE DOSAGE TEXT
     Route: 048
     Dates: start: 20040407, end: 20040429
  2. ORTHO TRI-CYCLEN [Concomitant]

REACTIONS (5)
  - CONJUNCTIVAL HAEMORRHAGE [None]
  - DEEP VEIN THROMBOSIS [None]
  - DISORIENTATION [None]
  - MYALGIA [None]
  - PETECHIAE [None]
